FAERS Safety Report 9849636 (Version 3)
Quarter: 2014Q2

REPORT INFORMATION
  Report Type: Spontaneous
  Country: US (occurrence: None)
  Receive Date: 20131224
  Receipt Date: 20140530
  Transmission Date: 20141212
  Serious: Yes (Other)
  Sender: FDA-Public Use
  Company Number: PHEH2013US021282

PATIENT
  Age: 48 Year
  Sex: Female

DRUGS (8)
  1. AFINITOR [Suspect]
     Indication: BREAST CANCER METASTATIC
     Route: 048
     Dates: start: 20130911, end: 20130916
  2. LEVOTHROID (LEVOTHYROXINE SODIUM) [Concomitant]
  3. GABAPENTIN (GABAPENTIN) [Concomitant]
  4. ATIVAN (LORAZEPAM) [Concomitant]
  5. FENTANYL (FENTANYL) [Concomitant]
  6. AMLODIPINE (AMLODIPINE) [Concomitant]
  7. ERYTHROMYCIN (ERYTHROMYCIN) [Concomitant]
  8. HYDROMORPHON (HYDROMORPHONE HYDROCHLORIDE) [Concomitant]

REACTIONS (3)
  - Heart rate increased [None]
  - Blood pressure increased [None]
  - Cough [None]
